FAERS Safety Report 21575735 (Version 9)
Quarter: 2023Q4

REPORT INFORMATION
  Report Type: Spontaneous
  Country: US (occurrence: US)
  Receive Date: 20221110
  Receipt Date: 20231027
  Transmission Date: 20240110
  Serious: No
  Sender: FDA-Public Use
  Company Number: US-GLAXOSMITHKLINE-US2022AMR162446

PATIENT
  Sex: Female
  Weight: 45.351 kg

DRUGS (2)
  1. ZEJULA [Suspect]
     Active Substance: NIRAPARIB
     Indication: Product used for unknown indication
     Dosage: 100 MG, QD
  2. ZEJULA [Suspect]
     Active Substance: NIRAPARIB
     Indication: Product used for unknown indication
     Dosage: 100 MG, QD

REACTIONS (14)
  - Hypoaesthesia [Not Recovered/Not Resolved]
  - Paraesthesia [Unknown]
  - Peripheral swelling [Recovered/Resolved]
  - Limb discomfort [Not Recovered/Not Resolved]
  - Hot flush [Unknown]
  - Blood cholesterol increased [Unknown]
  - Full blood count abnormal [Unknown]
  - Lung disorder [Unknown]
  - Pancreatic disorder [Unknown]
  - Gastrointestinal disorder [Unknown]
  - Insomnia [Unknown]
  - Fatigue [Unknown]
  - Off label use [Unknown]
  - Product dose omission in error [Unknown]
